FAERS Safety Report 5160738-8 (Version None)
Quarter: 2006Q4

REPORT INFORMATION
  Report Type: 
  Country: None (occurrence: None)
  Receive Date: 20061121
  Receipt Date: 20061110
  Transmission Date: 20070319
  Serious: Yes (Other)
  Sender: FDA-Public Use
  Company Number: 2006140035

PATIENT
  Age: 64 Year
  Sex: Female
  Weight: 87.0906 kg

DRUGS (14)
  1. LIPITOR [Suspect]
     Dates: end: 20060101
  2. CICLOPIROX (CICLOPIROX) [Suspect]
     Indication: ONYCHOMYCOSIS
     Dosage: TOPICAL
     Route: 061
     Dates: start: 20050821, end: 20060201
  3. PREVACID [Concomitant]
  4. VICODIN [Concomitant]
  5. AMBIEN [Concomitant]
  6. ERGOCALCIFEROL (ERGOCALCIFEROL) [Concomitant]
  7. ASCORBIC ACID [Concomitant]
  8. FOLIC ACID [Concomitant]
  9. THIAMINE HCL [Concomitant]
  10. RETINOL [Concomitant]
  11. RIBOFLAVIN TAB [Concomitant]
  12. NICOTINAMIDE [Concomitant]
  13. PANTHENOL [Concomitant]
  14. SKELAXIN [Concomitant]

REACTIONS (12)
  - ADVERSE DRUG REACTION [None]
  - ANOREXIA [None]
  - APHONIA [None]
  - ASTHENIA [None]
  - BLOOD CREATINE PHOSPHOKINASE INCREASED [None]
  - DERMATOMYOSITIS [None]
  - DRUG INTERACTION [None]
  - DYSSTASIA [None]
  - FIBROMYALGIA [None]
  - PAIN [None]
  - RASH ERYTHEMATOUS [None]
  - WEIGHT DECREASED [None]
